FAERS Safety Report 9330109 (Version 8)
Quarter: 2016Q4

REPORT INFORMATION
  Report Type: Spontaneous
  Country: US (occurrence: US)
  Receive Date: 20130604
  Receipt Date: 20161219
  Transmission Date: 20170207
  Serious: Yes (Hospitalization, Other)
  Sender: FDA-Public Use
  Company Number: US-MERCK-1305USA017799

PATIENT
  Sex: Female
  Weight: 58.96 kg

DRUGS (4)
  1. FOSAMAX [Suspect]
     Active Substance: ALENDRONATE SODIUM
     Indication: OSTEOPOROSIS
     Dosage: 10 MG, UNK
     Route: 048
     Dates: start: 20031001, end: 20040127
  2. FOSAMAX [Suspect]
     Active Substance: ALENDRONATE SODIUM
     Dosage: 70 MG, UNK
     Route: 048
     Dates: start: 20040301, end: 20071128
  3. FOSAMAX [Suspect]
     Active Substance: ALENDRONATE SODIUM
     Dosage: UNK
     Route: 048
     Dates: start: 20040501, end: 20100520
  4. ALENDRONATE SODIUM. [Suspect]
     Active Substance: ALENDRONATE SODIUM
     Indication: OSTEOPOROSIS
     Dosage: 70 MG, UNK
     Route: 048
     Dates: start: 20080226, end: 201210

REACTIONS (18)
  - Bronchitis [Unknown]
  - Type V hyperlipidaemia [Unknown]
  - Periarthritis [Unknown]
  - Vitamin D deficiency [Unknown]
  - Impaired fasting glucose [Unknown]
  - Rheumatoid arthritis [Unknown]
  - Femur fracture [Recovered/Resolved with Sequelae]
  - Gastrooesophageal reflux disease [Unknown]
  - Blood pressure increased [Unknown]
  - Essential hypertension [Unknown]
  - Hypovitaminosis [Unknown]
  - Mobility decreased [Unknown]
  - Anaemia postoperative [Recovered/Resolved]
  - Arthropathy [Unknown]
  - Leukocytosis [Unknown]
  - Trigger finger [Unknown]
  - Diarrhoea [Unknown]
  - Chondromalacia [Unknown]

NARRATIVE: CASE EVENT DATE: 2004
